FAERS Safety Report 5423121-3 (Version None)
Quarter: 2007Q3

REPORT INFORMATION
  Report Type: 
  Country: None (occurrence: None)
  Receive Date: 20070821
  Receipt Date: 20070806
  Transmission Date: 20080115
  Serious: Yes (Death, Hospitalization)
  Sender: FDA-Public Use
  Company Number: 2007001372

PATIENT
  Age: 57 Year
  Sex: Male

DRUGS (1)
  1. TARCEVA [Suspect]
     Indication: LUNG NEOPLASM MALIGNANT
     Dosage: 150 MG (QD),ORAL
     Route: 048
     Dates: start: 20070627, end: 20070715

REACTIONS (6)
  - HAEMOTHORAX [None]
  - INTERSTITIAL LUNG DISEASE [None]
  - LUNG NEOPLASM MALIGNANT [None]
  - MALIGNANT NEOPLASM PROGRESSION [None]
  - NO THERAPEUTIC RESPONSE [None]
  - PLEURAL HAEMORRHAGE [None]
